FAERS Safety Report 8964014 (Version 1)
Quarter: 2012Q4

REPORT INFORMATION
  Report Type: 
  Country: US (occurrence: US)
  Receive Date: 20121214
  Receipt Date: 20121214
  Transmission Date: 20130627
  Serious: Yes (Other)
  Sender: FDA-Public Use
  Company Number: US-BAYER-2012-129865

PATIENT
  Age: 19 Year
  Sex: Female

DRUGS (10)
  1. YAZ [Suspect]
  2. YASMIN [Suspect]
  3. MELOXICAM [Concomitant]
     Dosage: 15 mg, UNK
     Route: 048
  4. MINOCYCLINE [Concomitant]
     Dosage: 100 mg, UNK
     Route: 048
  5. MEPERITAB [Concomitant]
     Dosage: 50 mg, UNK
  6. PROMETHAZINE [Concomitant]
     Dosage: 25 mg, UNK
  7. CEPHALEXIN [Concomitant]
     Dosage: 500 mg, UNK
  8. KETORLAC [Concomitant]
     Dosage: 10 mg, UNK
  9. HYDROCODONE W/APAP [Concomitant]
  10. BENADRYL [Concomitant]

REACTIONS (1)
  - Deep vein thrombosis [None]
